FAERS Safety Report 5651449-0 (Version None)
Quarter: 2008Q1

REPORT INFORMATION
  Report Type: 
  Country: None (occurrence: None)
  Receive Date: 20080305
  Receipt Date: 20080222
  Transmission Date: 20080703
  Serious: Yes (Hospitalization)
  Sender: FDA-Public Use
  Company Number: US-ELI_LILLY_AND_COMPANY-US200801005539

PATIENT
  Age: 62 Year
  Sex: Male
  Weight: 57.143 kg

DRUGS (12)
  1. BYETTA [Suspect]
     Dosage: 10 UG, 2/D
     Route: 058
     Dates: start: 20050614, end: 20070402
  2. METFORMIN HCL [Concomitant]
     Dosage: UNK, UNKNOWN
     Dates: start: 20030101
  3. ROSIGLITAZONE [Concomitant]
     Dosage: UNK, UNKNOWN
     Dates: start: 20030101
  4. LANTUS [Concomitant]
     Dosage: UNK, UNKNOWN
     Dates: start: 20030101
  5. NOVOLOG [Concomitant]
     Dosage: UNK, UNKNOWN
     Dates: start: 20030101
  6. SIMVASTATIN [Concomitant]
     Dosage: UNK, UNKNOWN
     Dates: start: 20030101
  7. DULOXETINE [Concomitant]
     Dosage: UNK, UNKNOWN
     Dates: start: 20050629
  8. FUROSEMIDE [Concomitant]
     Dosage: UNK, UNKNOWN
     Dates: start: 20040101
  9. ACCURETIC [Concomitant]
     Dosage: UNK, UNKNOWN
     Dates: start: 20040101
  10. ASPIRIN [Concomitant]
     Dosage: UNK, UNKNOWN
     Dates: start: 20030101
  11. FENOFIBRATE [Concomitant]
     Dosage: UNK, UNKNOWN
  12. PLACEBO [Concomitant]
     Dosage: UNK, UNKNOWN
     Dates: start: 20030101

REACTIONS (2)
  - GASTRITIS EROSIVE [None]
  - PANCREATITIS ACUTE [None]
